FAERS Safety Report 21473721 (Version 1)
Quarter: 2022Q4

REPORT INFORMATION
  Report Type: Report from Study
  Country: US (occurrence: US)
  Receive Date: 20221018
  Receipt Date: 20221018
  Transmission Date: 20230113
  Serious: Yes (Death)
  Sender: FDA-Public Use
  Company Number: US-BRISTOL-MYERS SQUIBB COMPANY-2022-121848

PATIENT
  Age: 65 Year
  Sex: Male
  Weight: 100.65 kg

DRUGS (2)
  1. REVLIMID [Suspect]
     Active Substance: LENALIDOMIDE
     Indication: Plasma cell myeloma
     Dosage: DAYS 1-21
     Route: 048
     Dates: start: 20211126, end: 20221007
  2. DARZALEX FASPRO [Suspect]
     Active Substance: DARATUMUMAB\HYALURONIDASE-FIHJ
     Indication: Plasma cell myeloma
     Dosage: WEEKLY X 8 DOSES, Q2 WEEKSX 8 DOSES, THEN Q4 WEEKS
     Route: 042
     Dates: start: 20210521, end: 20221007

REACTIONS (2)
  - Bronchitis [Unknown]
  - Cardiac disorder [Fatal]
